FAERS Safety Report 21566397 (Version 1)
Quarter: 2022Q4

REPORT INFORMATION
  Report Type: Report from Study
  Country: US (occurrence: US)
  Receive Date: 20221108
  Receipt Date: 20221108
  Transmission Date: 20230113
  Serious: No
  Sender: FDA-Public Use
  Company Number: US-ABBVIE-4136343

PATIENT
  Age: 33 Year
  Sex: Female
  Weight: 163.29 kg

DRUGS (7)
  1. HUMIRA [Suspect]
     Active Substance: ADALIMUMAB
     Indication: Hidradenitis
     Route: 030
  2. HUMIRA [Suspect]
     Active Substance: ADALIMUMAB
     Dosage: CITRATE FREE; FORM STRENGTH: 40 MILLIGRAM
     Route: 030
     Dates: start: 202210
  3. XIGDUO XR [Concomitant]
     Active Substance: DAPAGLIFLOZIN PROPANEDIOL\METFORMIN HYDROCHLORIDE
     Indication: Product used for unknown indication
  4. IBUPROFEN [Concomitant]
     Active Substance: IBUPROFEN
     Indication: Contusion
     Dosage: 800 MILLIGRAM
  5. FARXIGA [Concomitant]
     Active Substance: DAPAGLIFLOZIN PROPANEDIOL
     Indication: Product used for unknown indication
  6. Pfizer/BioNTech [Concomitant]
     Indication: COVID-19 immunisation
     Dosage: 1ST DOSE; FREQUENCY: ONE TIME ONCE
     Route: 030
     Dates: start: 20210601, end: 20210601
  7. Pfizer/BioNTech [Concomitant]
     Indication: COVID-19 immunisation
     Dosage: 2ND DOSE; FREQUENCY: ONE TIME ONCE
     Route: 030
     Dates: start: 20210630, end: 20210630

REACTIONS (6)
  - Device issue [Not Recovered/Not Resolved]
  - Injection site hyperaesthesia [Recovering/Resolving]
  - Injection site bruising [Recovered/Resolved]
  - Injection site haemorrhage [Recovered/Resolved]
  - Injection site pain [Recovering/Resolving]
  - Injection site swelling [Recovered/Resolved]

NARRATIVE: CASE EVENT DATE: 20220916
